FAERS Safety Report 21399637 (Version 1)
Quarter: 2022Q4

REPORT INFORMATION
  Report Type: Spontaneous
  Country: CN (occurrence: CN)
  Receive Date: 20221001
  Receipt Date: 20221001
  Transmission Date: 20230113
  Serious: Yes (Other)
  Sender: FDA-Public Use
  Company Number: None

PATIENT
  Age: 51 Year
  Sex: Female
  Weight: 78 kg

DRUGS (8)
  1. CYCLOPHOSPHAMIDE [Suspect]
     Active Substance: CYCLOPHOSPHAMIDE
     Indication: Breast cancer female
     Dosage: 1G, ST (DILUTED WITH 0.9% SODIUM CHLORIDE INJECTION, FOR FIRST MAINTENANCE CHEMOTHERAPY)
     Route: 041
     Dates: start: 20220527, end: 20220527
  2. CYCLOPHOSPHAMIDE [Suspect]
     Active Substance: CYCLOPHOSPHAMIDE
     Dosage: 1G, ST (DILUTED WITH 0.9% SODIUM CHLORIDE INJECTION, FOR SECOND CHEMOTHERAPY)
     Route: 041
     Dates: start: 20220627
  3. SODIUM CHLORIDE [Suspect]
     Active Substance: SODIUM CHLORIDE
     Indication: Medication dilution
     Dosage: 100ML, ST (DILUTED IN CYCLOPHOSPHAMIDE, FIRST CHEMOTHERAPY)
     Route: 041
     Dates: start: 20220527, end: 20220527
  4. SODIUM CHLORIDE [Suspect]
     Active Substance: SODIUM CHLORIDE
     Dosage: 100ML, ST, (DILUTED WITH EPIRUBICIN, FIRST CHEMOTHERAPY)
     Route: 041
     Dates: start: 20220527, end: 20220527
  5. SODIUM CHLORIDE [Suspect]
     Active Substance: SODIUM CHLORIDE
     Dosage: 100ML, ST, (DILUTED WITH CYCLOPHOSPHAMIDE, SECOND CHEMOTHERAPY)
     Route: 041
     Dates: start: 20220627
  6. SODIUM CHLORIDE [Suspect]
     Active Substance: SODIUM CHLORIDE
     Dosage: 100ML, ST, (DILUTED WITH EPIRUBICIN, SECOND CHEMOTHERAPY)
     Route: 041
     Dates: start: 20220627
  7. EPIRUBICIN HYDROCHLORIDE [Suspect]
     Active Substance: EPIRUBICIN HYDROCHLORIDE
     Indication: Breast cancer female
     Dosage: 160G, ST, (DILUTED WITH 0.9% SODIUM CHLORIDE INJECTION, FOR FIRST MAINTENANCE CHEMOTHERAPY)
     Route: 041
     Dates: start: 20220527, end: 20220527
  8. EPIRUBICIN HYDROCHLORIDE [Suspect]
     Active Substance: EPIRUBICIN HYDROCHLORIDE
     Dosage: 160G, ST, (DILUTED WITH 0.9% SODIUM CHLORIDE INJECTION, FOR SECOND CHEMOTHERAPY)
     Route: 041
     Dates: start: 20220627

REACTIONS (2)
  - Hepatic function abnormal [Recovered/Resolved]
  - Drug-induced liver injury [Unknown]

NARRATIVE: CASE EVENT DATE: 20220606
